FAERS Safety Report 6647065-4 (Version None)
Quarter: 2010Q1

REPORT INFORMATION
  Report Type: 
  Country: None (occurrence: None)
  Receive Date: 20100323
  Receipt Date: 20100310
  Transmission Date: 20100710
  Serious: Yes (Hospitalization)
  Sender: FDA-Public Use
  Company Number: PHHY2010GR14350

PATIENT
  Sex: Female
  Weight: 82 kg

DRUGS (3)
  1. ZOMETA [Suspect]
     Indication: MULTIPLE MYELOMA
     Dosage: UNK
     Dates: start: 20100120
  2. REVLIMID [Suspect]
     Indication: MULTIPLE MYELOMA
     Dosage: 25 MG, UNK
     Route: 048
     Dates: start: 20100120, end: 20100129
  3. DEXAMETHASONE [Suspect]
     Indication: MULTIPLE MYELOMA
     Dosage: 40 MG, UNK
     Route: 048
     Dates: start: 20100120, end: 20100129

REACTIONS (11)
  - BLOOD CALCIUM DECREASED [None]
  - HAEMOGLOBIN DECREASED [None]
  - NEPHROTIC SYNDROME [None]
  - OEDEMA [None]
  - PAIN [None]
  - PRIMARY AMYLOIDOSIS [None]
  - PYREXIA [None]
  - RENAL FAILURE ACUTE [None]
  - SINUSITIS [None]
  - SWELLING [None]
  - TOOTH ABSCESS [None]
